FAERS Safety Report 7981994-4 (Version None)
Quarter: 2011Q4

REPORT INFORMATION
  Report Type: 
  Country: None (occurrence: None)
  Receive Date: 20111215
  Receipt Date: 20111207
  Transmission Date: 20120403
  Serious: Yes (Hospitalization)
  Sender: FDA-Public Use
  Company Number: AU-B.I. PHARMACEUTICALS,INC./RIDGEFIELD-2011-AU-02397AU

PATIENT
  Age: 9 Decade
  Sex: Female

DRUGS (1)
  1. PRADAXA [Suspect]

REACTIONS (1)
  - CEREBROVASCULAR ACCIDENT [None]
